FAERS Safety Report 18918382 (Version 1)
Quarter: 2021Q1

REPORT INFORMATION
  Report Type: Spontaneous
  Country: FR (occurrence: FR)
  Receive Date: 20210219
  Receipt Date: 20210219
  Transmission Date: 20210420
  Serious: Yes (Other)
  Sender: FDA-Public Use
  Company Number: FR-JUBILANT CADISTA PHARMACEUTICALS-2021JUB00038

PATIENT
  Age: 73 Year
  Sex: Male

DRUGS (3)
  1. CHEMOTHERAPY (FOLFOX) [Concomitant]
     Route: 065
  2. OXALIPLATIN. [Suspect]
     Active Substance: OXALIPLATIN
     Route: 065
  3. METHYLPREDNISOLONE. [Suspect]
     Active Substance: METHYLPREDNISOLONE
     Indication: PREMEDICATION
     Route: 065

REACTIONS (4)
  - Renal tubular necrosis [Unknown]
  - Intravascular haemolysis [Unknown]
  - Acute kidney injury [Unknown]
  - Haemolytic anaemia [Unknown]
